FAERS Safety Report 7420426-1 (Version None)
Quarter: 2011Q2

REPORT INFORMATION
  Report Type: 
  Country: None (occurrence: None)
  Receive Date: 20110418
  Receipt Date: 20110415
  Transmission Date: 20111010
  Serious: Yes (Other)
  Sender: FDA-Public Use
  Company Number: US-PFIZER INC-2010099196

PATIENT
  Age: 67 Year
  Sex: Male

DRUGS (3)
  1. SPIRONOLACTONE [Suspect]
  2. LIPITOR [Suspect]
     Dosage: 20 MG, UNK
  3. TRANDOLAPRIL [Suspect]

REACTIONS (4)
  - LIMB DISCOMFORT [None]
  - MUSCLE DISORDER [None]
  - LETHARGY [None]
  - FATIGUE [None]
